FAERS Safety Report 21682014 (Version 1)
Quarter: 2022Q4

REPORT INFORMATION
  Report Type: Spontaneous
  Country: US (occurrence: US)
  Receive Date: 20221205
  Receipt Date: 20221205
  Transmission Date: 20230113
  Serious: Yes (Hospitalization)
  Sender: FDA-Public Use
  Company Number: US-MYLANLABS-2022M1134476

PATIENT
  Age: 22 Year
  Sex: Male

DRUGS (20)
  1. DAPTOMYCIN [Suspect]
     Active Substance: DAPTOMYCIN
     Indication: Osteomyelitis
     Dosage: UNK
     Route: 065
  2. DAPTOMYCIN [Suspect]
     Active Substance: DAPTOMYCIN
     Indication: Arthritis infective
  3. AMPICILLIN SODIUM\SULBACTAM SODIUM [Suspect]
     Active Substance: AMPICILLIN SODIUM\SULBACTAM SODIUM
     Indication: Osteomyelitis
     Dosage: UNK
     Route: 065
  4. AMPICILLIN SODIUM\SULBACTAM SODIUM [Suspect]
     Active Substance: AMPICILLIN SODIUM\SULBACTAM SODIUM
     Indication: Arthritis infective
  5. NYSTATIN [Suspect]
     Active Substance: NYSTATIN
     Indication: Osteomyelitis
     Dosage: UNK
     Route: 065
  6. NYSTATIN [Suspect]
     Active Substance: NYSTATIN
     Indication: Arthritis infective
  7. ERTAPENEM [Suspect]
     Active Substance: ERTAPENEM
     Indication: Osteomyelitis
     Dosage: UNK
     Route: 065
  8. ERTAPENEM [Suspect]
     Active Substance: ERTAPENEM
     Indication: Arthritis infective
  9. PIPERACILLIN AND TAZOBACTAM [Suspect]
     Active Substance: PIPERACILLIN SODIUM\TAZOBACTAM SODIUM
     Indication: Osteomyelitis
     Dosage: UNK
     Route: 065
  10. PIPERACILLIN AND TAZOBACTAM [Suspect]
     Active Substance: PIPERACILLIN SODIUM\TAZOBACTAM SODIUM
     Indication: Arthritis infective
  11. MICAFUNGIN [Suspect]
     Active Substance: MICAFUNGIN
     Indication: Osteomyelitis
     Dosage: UNK
     Route: 065
  12. MICAFUNGIN [Suspect]
     Active Substance: MICAFUNGIN
     Indication: Arthritis infective
  13. MEROPENEM [Suspect]
     Active Substance: MEROPENEM
     Indication: Osteomyelitis
     Dosage: UNK
     Route: 065
  14. MEROPENEM [Suspect]
     Active Substance: MEROPENEM
     Indication: Arthritis infective
  15. AMPHOTERICIN B [Suspect]
     Active Substance: AMPHOTERICIN B
     Indication: Osteomyelitis
     Dosage: UNK
     Route: 065
  16. AMPHOTERICIN B [Suspect]
     Active Substance: AMPHOTERICIN B
     Indication: Arthritis infective
  17. FLUCYTOSINE [Suspect]
     Active Substance: FLUCYTOSINE
     Indication: Osteomyelitis
     Dosage: UNK
     Route: 065
  18. FLUCYTOSINE [Suspect]
     Active Substance: FLUCYTOSINE
     Indication: Arthritis infective
  19. POSACONAZOLE [Suspect]
     Active Substance: POSACONAZOLE
     Indication: Osteomyelitis
     Dosage: UNK
     Route: 065
  20. POSACONAZOLE [Suspect]
     Active Substance: POSACONAZOLE
     Indication: Arthritis infective

REACTIONS (2)
  - Serum sickness [Unknown]
  - Drug ineffective [Unknown]
